FAERS Safety Report 4375492-7 (Version None)
Quarter: 2004Q2

REPORT INFORMATION
  Report Type: 
  Country: None (occurrence: None)
  Receive Date: 20040607
  Receipt Date: 20040602
  Transmission Date: 20050107
  Serious: Yes (Death)
  Sender: FDA-Public Use
  Company Number: 2003UW06395

PATIENT
  Age: 85 Year
  Sex: Female
  Weight: 53.0709 kg

DRUGS (15)
  1. ARIMIDEX [Suspect]
     Indication: BREAST CANCER
     Dosage: 1 MG DAILY PO
     Route: 048
     Dates: start: 19981118, end: 20030507
  2. LOPRESSOR [Concomitant]
  3. HYDROCHLOROTHIAZIDE [Concomitant]
  4. VITAMIN E [Concomitant]
  5. VIACTIV [Concomitant]
  6. MIACALCIN [Concomitant]
  7. DARVOCET-N 100 [Concomitant]
  8. PAXIL [Concomitant]
  9. LASIX [Concomitant]
  10. OXYCONTIN [Concomitant]
  11. NYSTATIN [Concomitant]
  12. GLYCERIN [Concomitant]
  13. PHENERGAN [Concomitant]
  14. PERCOCET [Concomitant]
  15. ATIVAN [Concomitant]

REACTIONS (4)
  - DYSPNOEA EXERTIONAL [None]
  - FATIGUE [None]
  - MALIGNANT NEOPLASM PROGRESSION [None]
  - PAPILLARY SEROUS ENDOMETRIAL CARCINOMA [None]
